FAERS Safety Report 10495036 (Version 1)
Quarter: 2014Q3

REPORT INFORMATION
  Report Type: Spontaneous
  Country: US (occurrence: None)
  Receive Date: 20140815
  Receipt Date: 20140815
  Transmission Date: 20150326
  Serious: Yes (Hospitalization, Other)
  Sender: FDA-Public Use
  Company Number: ADR-2014-00312

PATIENT
  Age: 53 Year
  Sex: Female

DRUGS (16)
  1. POTASSIUM CHLORIDE. [Suspect]
     Active Substance: POTASSIUM CHLORIDE
  2. ASPIRIN. [Suspect]
     Active Substance: ASPIRIN
  3. FUROSEMIDE. [Suspect]
     Active Substance: FUROSEMIDE
  4. COLACE [Suspect]
     Active Substance: DOCUSATE SODIUM
  5. ARTIFICIAL TEARS [Suspect]
     Active Substance: GLYCERIN\HYPROMELLOSES\POLYETHYLENE GLYCOL 400
  6. BACLOFEN. [Suspect]
     Active Substance: BACLOFEN
     Indication: MUSCLE SPASTICITY
     Dosage: 315.43 MCG/DAY
  7. FERROUS SULFATE [Suspect]
     Active Substance: FERROUS SULFATE\FERROUS SULFATE, DRIED
  8. TRAMADOL [Suspect]
     Active Substance: TRAMADOL
  9. SALINE [Suspect]
     Active Substance: SODIUM CHLORIDE
  10. RESTASIS [Suspect]
     Active Substance: CYCLOSPORINE
  11. BUPIVACAINE [Suspect]
     Active Substance: BUPIVACAINE
     Dosage: 26.451 MG/DAY
  12. CARBAMAZEPINE. [Suspect]
     Active Substance: CARBAMAZEPINE
  13. ORAL BACLOFEN [Suspect]
     Active Substance: BACLOFEN
  14. FLONASE [Suspect]
     Active Substance: FLUTICASONE PROPIONATE
  15. OXYBUTYNIN [Suspect]
     Active Substance: OXYBUTYNIN
  16. MULTIVITAMIN [Suspect]
     Active Substance: VITAMINS

REACTIONS (3)
  - Pain [None]
  - Urosepsis [None]
  - Muscle spasms [None]
